FAERS Safety Report 6338236-5 (Version None)
Quarter: 2009Q3

REPORT INFORMATION
  Report Type: 
  Country: None (occurrence: None)
  Receive Date: 20090902
  Receipt Date: 20090828
  Transmission Date: 20100115
  Serious: Yes (Death, Life-Threatening, Hospitalization, Other)
  Sender: FDA-Public Use
  Company Number: PHHO2009US08239

PATIENT
  Sex: Male
  Weight: 92.1 kg

DRUGS (18)
  1. CGP 57148B T35717+ [Suspect]
     Indication: CHRONIC GRAFT VERSUS HOST DISEASE
     Dosage: 200 MG, UNK
     Route: 048
     Dates: start: 20090320, end: 20090510
  2. CGP 57148B T35717+ [Suspect]
     Dosage: 400 UNK, UNK
     Route: 048
     Dates: start: 20090511, end: 20090605
  3. CGP 57148B T35717+ [Suspect]
     Dosage: NO TREATMENT
     Dates: start: 20090606, end: 20090614
  4. CGP 57148B T35717+ [Suspect]
     Dosage: 200 MG, QD
     Route: 048
     Dates: start: 20090615, end: 20090629
  5. CYCLOSPORINE [Suspect]
     Dosage: 50 MG, QD
  6. STEROIDS NOS [Suspect]
     Dosage: 20 MG, QD
  7. PREDNISONE [Concomitant]
     Dosage: UNK
  8. VORICONAZOLE [Concomitant]
  9. METOPROLOL [Concomitant]
  10. ACYCLOVIR [Concomitant]
  11. LOTEMAX [Concomitant]
  12. GENTEAL [Concomitant]
  13. PRILOSEC [Concomitant]
  14. AMLODIPINE [Concomitant]
  15. PRAVASTATIN [Concomitant]
  16. GENGRAF [Concomitant]
  17. CALCIUM [Concomitant]
  18. VITAMIN D [Concomitant]

REACTIONS (19)
  - ENDOTRACHEAL INTUBATION [None]
  - EYELID OEDEMA [None]
  - FATIGUE [None]
  - HYPERTENSION [None]
  - HYPOXIA [None]
  - INFLUENZA [None]
  - LUNG INFILTRATION [None]
  - MUSCLE SPASMS [None]
  - MYALGIA [None]
  - NAUSEA [None]
  - NEURALGIA [None]
  - OEDEMA PERIPHERAL [None]
  - OXYGEN SATURATION DECREASED [None]
  - PALATAL DISORDER [None]
  - PHOTOSENSITIVITY REACTION [None]
  - PYREXIA [None]
  - RASH ERYTHEMATOUS [None]
  - SNORING [None]
  - TACHYCARDIA [None]
